FAERS Safety Report 14786007 (Version 2)
Quarter: 2018Q4

REPORT INFORMATION
  Report Type: Spontaneous
  Country: IN (occurrence: IN)
  Receive Date: 20180420
  Receipt Date: 20181016
  Transmission Date: 20190204
  Serious: Yes (Other)
  Sender: FDA-Public Use
  Company Number: IN-DRREDDYS-USA/IND/18/0097825

PATIENT
  Age: 72 Year
  Sex: Female

DRUGS (12)
  1. NORMAL SALINE [Concomitant]
     Active Substance: SODIUM CHLORIDE
     Dosage: CISPLATIN 7.5 MG/M2 BSA IN A 150 ML NACL 0.9 PERCENT
  2. OXALIPLATIN. [Suspect]
     Active Substance: OXALIPLATIN
     Indication: METASTASES TO PERITONEUM
     Dosage: AEROSOLISED
     Route: 065
  3. DOXORUBICIN HYDROCHLORIDE (PEGYLATED LIPOSOMAL) [Suspect]
     Active Substance: DOXORUBICIN HYDROCHLORIDE
     Indication: PSEUDOMYXOMA PERITONEI
  4. VECURONIUM [Concomitant]
     Active Substance: VECURONIUM BROMIDE
     Indication: PRODUCT USED FOR UNKNOWN INDICATION
     Route: 065
  5. FENTANYL. [Concomitant]
     Active Substance: FENTANYL
     Indication: GENERAL ANAESTHESIA
     Route: 065
  6. CISPLATIN. [Suspect]
     Active Substance: CISPLATIN
     Indication: METASTASES TO PERITONEUM
  7. PROPOFOL. [Concomitant]
     Active Substance: PROPOFOL
     Indication: GENERAL ANAESTHESIA
     Route: 065
  8. SEVOFLURANE. [Concomitant]
     Active Substance: SEVOFLURANE
     Indication: MAINTENANCE OF ANAESTHESIA
     Route: 065
  9. CISPLATIN. [Suspect]
     Active Substance: CISPLATIN
     Indication: PSEUDOMYXOMA PERITONEI
     Dosage: AEROSOLISED
     Route: 065
  10. OXALIPLATIN. [Suspect]
     Active Substance: OXALIPLATIN
     Indication: PSEUDOMYXOMA PERITONEI
  11. NORMAL SALINE [Concomitant]
     Active Substance: SODIUM CHLORIDE
     Indication: PRODUCT USED FOR UNKNOWN INDICATION
     Dosage: CANCERS DOXORUBICIN 1.5 MG/M2 BODY SURFACE AREA (BSA) IN A 50 ML NACL 0.9 PERCENT SOLUTION
     Route: 065
  12. DOXORUBICIN HYDROCHLORIDE (PEGYLATED LIPOSOMAL) [Suspect]
     Active Substance: DOXORUBICIN HYDROCHLORIDE
     Indication: METASTASES TO PERITONEUM
     Dosage: AEROSOLISED
     Route: 065

REACTIONS (1)
  - Chemical peritonitis [Recovered/Resolved]
